FAERS Safety Report 17983607 (Version 5)
Quarter: 2022Q4

REPORT INFORMATION
  Report Type: Spontaneous
  Country: JP (occurrence: JP)
  Receive Date: 20200706
  Receipt Date: 20221117
  Transmission Date: 20230113
  Serious: Yes (Hospitalization, Disabling)
  Sender: FDA-Public Use
  Company Number: JP-ELI_LILLY_AND_COMPANY-JP202006013047

PATIENT
  Age: 69 Year
  Sex: Female
  Weight: 62.8 kg

DRUGS (33)
  1. ADCIRCA [Suspect]
     Active Substance: TADALAFIL
     Indication: Pulmonary arterial hypertension
     Dosage: 20 MG, UNKNOWN
     Route: 065
     Dates: start: 20180518
  2. UPTRAVI [Suspect]
     Active Substance: SELEXIPAG
     Indication: Pulmonary arterial hypertension
     Dosage: 0.4 MG, UNKNOWN
     Route: 048
     Dates: start: 20180615
  3. PREDONINE [Suspect]
     Active Substance: PREDNISOLONE
     Indication: Sjogren^s syndrome
     Dosage: 40 MG, DAILY
     Route: 048
     Dates: start: 20180609, end: 20180629
  4. PREDONINE [Suspect]
     Active Substance: PREDNISOLONE
     Indication: Peritonitis
     Dosage: 30 MG, DAILY
     Route: 048
     Dates: start: 20180630, end: 20180706
  5. PREDONINE [Suspect]
     Active Substance: PREDNISOLONE
     Dosage: 25 MG, DAILY
     Route: 048
     Dates: start: 20180707, end: 20180718
  6. PREDONINE [Suspect]
     Active Substance: PREDNISOLONE
     Dosage: 20 MG, DAILY
     Route: 048
     Dates: start: 20180719, end: 20180731
  7. PREDONINE [Suspect]
     Active Substance: PREDNISOLONE
     Dosage: 1.5 MG, DAILY
     Route: 048
     Dates: start: 20180801, end: 20180816
  8. PREDONINE [Suspect]
     Active Substance: PREDNISOLONE
     Dosage: 15 MG, DAILY
     Route: 048
     Dates: start: 20180817, end: 20180823
  9. PREDONINE [Suspect]
     Active Substance: PREDNISOLONE
     Dosage: 10 MG, DAILY
     Route: 048
     Dates: start: 20180824, end: 20180825
  10. PREDONINE [Suspect]
     Active Substance: PREDNISOLONE
     Dosage: 10 MG, UNKNOWN
     Route: 065
     Dates: start: 20181008, end: 20181009
  11. PREDONINE [Suspect]
     Active Substance: PREDNISOLONE
     Dosage: 5 MG, DAILY
     Route: 048
     Dates: start: 20181026
  12. PREDONINE [Suspect]
     Active Substance: PREDNISOLONE
     Dosage: UNK, UNKNOWN
     Route: 065
     Dates: start: 20181026, end: 20190404
  13. PREDONINE [Suspect]
     Active Substance: PREDNISOLONE
     Dosage: UNK UNK, UNKNOWN
     Route: 065
     Dates: end: 20191212
  14. PREDONINE [Suspect]
     Active Substance: PREDNISOLONE
     Dosage: 4 MG, DAILY
     Route: 048
     Dates: start: 20191213, end: 20200123
  15. PREDONINE [Suspect]
     Active Substance: PREDNISOLONE
     Dosage: 3 MG, DAILY
     Route: 048
     Dates: start: 20200124, end: 20200312
  16. PREDONINE [Suspect]
     Active Substance: PREDNISOLONE
     Dosage: 2 MG, DAILY
     Route: 048
     Dates: start: 20200313
  17. CYCLOPHOSPHAMIDE [Suspect]
     Active Substance: CYCLOPHOSPHAMIDE
     Indication: Sjogren^s syndrome
     Dosage: 800 MG, DAILY
     Route: 042
     Dates: start: 20180626, end: 20180626
  18. CYCLOPHOSPHAMIDE [Suspect]
     Active Substance: CYCLOPHOSPHAMIDE
     Dosage: 600 MG, DAILY
     Route: 042
     Dates: start: 20180724, end: 20180724
  19. PREDNISOLONE [Suspect]
     Active Substance: PREDNISOLONE
     Indication: Sjogren^s syndrome
     Dosage: 3 MG, DAILY
     Route: 048
     Dates: start: 20180824, end: 20180921
  20. PREDNISOLONE [Suspect]
     Active Substance: PREDNISOLONE
     Dosage: UNK
     Dates: start: 20200313
  21. SPIRONOLACTONE [Suspect]
     Active Substance: SPIRONOLACTONE
     Indication: Oedema
     Dosage: 50 MG, DAILY
     Route: 048
     Dates: start: 20180907, end: 20181011
  22. SPIRONOLACTONE [Suspect]
     Active Substance: SPIRONOLACTONE
     Dosage: 25 MG, DAILY
     Route: 048
     Dates: start: 20181130, end: 20190725
  23. SPIRONOLACTONE [Suspect]
     Active Substance: SPIRONOLACTONE
     Dosage: 25 MG, DAILY
     Route: 048
     Dates: start: 20190912, end: 20210513
  24. ESOMEPRAZOLE MAGNESIUM [Concomitant]
     Active Substance: ESOMEPRAZOLE MAGNESIUM
     Indication: Product used for unknown indication
     Dosage: 10 MG
     Dates: start: 20180516
  25. METHYLCOBALAMIN [Concomitant]
     Active Substance: METHYLCOBALAMIN
     Indication: Lumbar spinal stenosis
     Dosage: 1500 G
     Dates: end: 20180625
  26. GRANISETRON [Concomitant]
     Active Substance: GRANISETRON
     Indication: Product used for unknown indication
     Dosage: 3 MG
     Dates: start: 20180626, end: 20180626
  27. SULFAMETHOXAZOLE\TRIMETHOPRIM [Concomitant]
     Active Substance: SULFAMETHOXAZOLE\TRIMETHOPRIM
     Indication: Product used for unknown indication
     Dosage: 1 DOSAGE FORM
     Dates: start: 20180621, end: 20180804
  28. LIMAPROST [Concomitant]
     Active Substance: LIMAPROST
     Indication: Lumbar spinal stenosis
     Dosage: 15 UNK
     Dates: end: 20180625
  29. ROCALTROL [Concomitant]
     Active Substance: CALCITRIOL
     Indication: Product used for unknown indication
     Dosage: 0.25 MG
     Dates: start: 20180824
  30. AMBRISENTAN [Concomitant]
     Active Substance: AMBRISENTAN
     Indication: Pulmonary arterial hypertension
     Dosage: 5 MG
     Dates: start: 20180512
  31. AMLODIPINE BESYLATE [Concomitant]
     Active Substance: AMLODIPINE BESYLATE
     Indication: Hypertension
     Dosage: 20 MG
     Dates: end: 20180913
  32. AMLODIPINE BESYLATE [Concomitant]
     Active Substance: AMLODIPINE BESYLATE
     Dosage: UNK
     Dates: start: 20190913
  33. BENALON [Concomitant]
     Indication: Product used for unknown indication
     Dosage: 35 MG
     Dates: end: 20180807

REACTIONS (44)
  - Large intestine perforation [Recovered/Resolved with Sequelae]
  - Ascites [Recovering/Resolving]
  - Peritonitis [Recovered/Resolved]
  - Deep vein thrombosis [Recovering/Resolving]
  - Thalamus haemorrhage [Recovered/Resolved with Sequelae]
  - Pyelonephritis acute [Recovered/Resolved]
  - Cytomegalovirus infection [Recovered/Resolved]
  - Renal impairment [Recovering/Resolving]
  - Supraventricular tachycardia [Recovered/Resolved]
  - Pericardial effusion [Recovered/Resolved]
  - Hypoproteinaemia [Recovered/Resolved]
  - Tinea infection [Recovering/Resolving]
  - Oedema [Recovering/Resolving]
  - Zinc deficiency [Recovered/Resolved]
  - Coating in mouth [Recovering/Resolving]
  - Bacterial infection [Recovered/Resolved]
  - Oedema [Recovering/Resolving]
  - Steroid diabetes [Recovered/Resolved]
  - Anaemia [Recovered/Resolved]
  - Cytomegalovirus infection [Recovered/Resolved]
  - White blood cell count decreased [Recovered/Resolved]
  - White blood cell count decreased [Recovered/Resolved]
  - Taste disorder [Recovered/Resolved]
  - Decreased appetite [Recovered/Resolved]
  - Hypokalaemia [Recovered/Resolved]
  - Blood creatinine increased [Recovered/Resolved]
  - Steroid diabetes [Recovered/Resolved]
  - Dermatophytosis of nail [Recovered/Resolved]
  - Neutrophil count decreased [Recovered/Resolved]
  - White blood cell count decreased [Recovered/Resolved]
  - Cough [Recovered/Resolved]
  - Stoma site haemorrhage [Recovering/Resolving]
  - Influenza [Recovered/Resolved]
  - Platelet count decreased [Not Recovered/Not Resolved]
  - Hyperuricaemia [Not Recovered/Not Resolved]
  - Oedema [Recovering/Resolving]
  - Infection [Recovered/Resolved]
  - Oedema [Recovering/Resolving]
  - Oedema peripheral [Unknown]
  - Urinary tract infection [Recovered/Resolved]
  - Back pain [Recovering/Resolving]
  - Diarrhoea [Recovered/Resolved]
  - Hypertension [Recovering/Resolving]
  - Hypertension [Recovering/Resolving]

NARRATIVE: CASE EVENT DATE: 20180616
